FAERS Safety Report 16915648 (Version 1)
Quarter: 2019Q4

REPORT INFORMATION
  Report Type: Report from Study
  Country: US (occurrence: US)
  Receive Date: 20191014
  Receipt Date: 20191014
  Transmission Date: 20200122
  Serious: Yes (Other)
  Sender: FDA-Public Use
  Company Number: US-BRISTOL-MYERS SQUIBB COMPANY-BMS-2019-097714

PATIENT
  Sex: Female
  Weight: 44.45 kg

DRUGS (2)
  1. TRIAMTERENE AND HYDROCHLOROTHIAZIDE [Concomitant]
     Active Substance: HYDROCHLOROTHIAZIDE\TRIAMTERENE
     Indication: PRODUCT USED FOR UNKNOWN INDICATION
     Dosage: 37.5-25 MG TABS
     Route: 065
  2. APIXABAN [Suspect]
     Active Substance: APIXABAN
     Indication: EMBOLISM VENOUS
     Dosage: 2.5 MILLIGRAM, BID
     Route: 048
     Dates: start: 201811

REACTIONS (8)
  - Paraesthesia [Unknown]
  - Vision blurred [Unknown]
  - Muscular weakness [Unknown]
  - Peripheral swelling [Unknown]
  - Fatigue [Unknown]
  - Chromaturia [Unknown]
  - Hypoaesthesia [Unknown]
  - Skin discolouration [Unknown]
